FAERS Safety Report 7709560-6 (Version None)
Quarter: 2011Q3

REPORT INFORMATION
  Report Type: 
  Country: None (occurrence: None)
  Receive Date: 20110825
  Receipt Date: 20110825
  Transmission Date: 20111222
  Serious: Yes (Life-Threatening, Hospitalization)
  Sender: FDA-Public Use
  Company Number: US-JNJFOC-20110808255

PATIENT
  Age: 61 Year
  Sex: Male
  Weight: 92.53 kg

DRUGS (3)
  1. PAMIDRONATE DISODIUM [Suspect]
     Indication: MULTIPLE MYELOMA
     Dosage: DAY 1 AND EVERY 3 WEEKS
     Route: 042
     Dates: start: 20110307, end: 20110418
  2. VELCADE [Suspect]
     Indication: MULTIPLE MYELOMA
     Dosage: DAY 1, 4, 8, 11 AND EVERY 3 WEEKS
     Route: 042
     Dates: start: 20110307, end: 20110428
  3. DOXORUBICIN HCL [Suspect]
     Indication: MULTIPLE MYELOMA
     Dosage: DAY 1, 8 AND EVERY 3 WEEKS
     Route: 042
     Dates: start: 20110307, end: 20110425

REACTIONS (2)
  - RENAL FAILURE ACUTE [None]
  - HYPERGLYCAEMIA [None]
